FAERS Safety Report 5428001-5 (Version None)
Quarter: 2007Q3

REPORT INFORMATION
  Report Type: 
  Country: None (occurrence: None)
  Receive Date: 20070828
  Receipt Date: 20070816
  Transmission Date: 20080115
  Serious: Yes (Other)
  Sender: FDA-Public Use
  Company Number: GB-PFIZER INC-2007065197

PATIENT
  Sex: Female
  Weight: 52 kg

DRUGS (2)
  1. CHAMPIX [Suspect]
     Indication: SMOKING CESSATION THERAPY
     Route: 048
  2. NICOTINE [Concomitant]
     Indication: SMOKING CESSATION THERAPY
     Route: 062
     Dates: start: 20070720, end: 20070722

REACTIONS (7)
  - CRYING [None]
  - DIZZINESS [None]
  - IMPAIRED DRIVING ABILITY [None]
  - MENTAL DISORDER [None]
  - MUSCLE SPASMS [None]
  - NAUSEA [None]
  - PANIC ATTACK [None]
